FAERS Safety Report 15388043 (Version 1)
Quarter: 2018Q3

REPORT INFORMATION
  Report Type: Report from Study
  Country: None (occurrence: CA)
  Receive Date: 20180915
  Receipt Date: 20180915
  Transmission Date: 20181010
  Serious: Yes (Other)
  Sender: FDA-Public Use
  Company Number: CA-ABBVIE-17K-028-2192178-00

PATIENT
  Age: 58 Year
  Sex: Female

DRUGS (1)
  1. HUMIRA [Suspect]
     Active Substance: ADALIMUMAB
     Indication: PSORIATIC ARTHROPATHY
     Route: 058
     Dates: start: 20170201

REACTIONS (7)
  - Tendon rupture [Unknown]
  - Burning sensation [Not Recovered/Not Resolved]
  - Knee arthroplasty [Unknown]
  - Mobility decreased [Unknown]
  - Musculoskeletal stiffness [Not Recovered/Not Resolved]
  - Paraesthesia [Not Recovered/Not Resolved]
  - Procedural complication [Unknown]

NARRATIVE: CASE EVENT DATE: 201710
